FAERS Safety Report 13390647 (Version 1)
Quarter: 2017Q1

REPORT INFORMATION
  Report Type: Spontaneous
  Country: US (occurrence: US)
  Receive Date: 20170331
  Receipt Date: 20170331
  Transmission Date: 20170429
  Serious: No
  Sender: FDA-Public Use
  Company Number: US-BAYER-2017-061201

PATIENT
  Sex: Male

DRUGS (1)
  1. CLARITIN [Suspect]
     Active Substance: LORATADINE
     Indication: ALLERGY TO ANIMAL
     Dosage: UNK

REACTIONS (5)
  - Eye pruritus [Unknown]
  - Product use issue [None]
  - Lacrimation increased [Unknown]
  - Ocular hyperaemia [Unknown]
  - Drug ineffective for unapproved indication [Unknown]
